FAERS Safety Report 24700945 (Version 1)
Quarter: 2024Q4

REPORT INFORMATION
  Report Type: Spontaneous
  Country: US (occurrence: None)
  Receive Date: 20241204
  Receipt Date: 20241204
  Transmission Date: 20250115
  Serious: No
  Sender: Public
  Company Number: None

PATIENT
  Age: 44 Year
  Sex: Female

DRUGS (1)
  1. ENBREL [Suspect]
     Active Substance: ETANERCEPT
     Indication: Connective tissue disorder
     Dosage: FREQUENCY : WEEKLY;?
     Route: 058
     Dates: start: 202009

REACTIONS (2)
  - Influenza [None]
  - Alopecia [None]
